FAERS Safety Report 5722373-X (Version None)
Quarter: 2008Q2

REPORT INFORMATION
  Report Type: 
  Country: None (occurrence: None)
  Receive Date: 20080429
  Receipt Date: 20070801
  Transmission Date: 20081010
  Serious: No
  Sender: FDA-Public Use
  Company Number: US-ASTRAZENECA-2007UW18494

PATIENT
  Age: 68 Year
  Sex: Female

DRUGS (2)
  1. NEXIUM [Suspect]
     Indication: OESOPHAGEAL DISORDER
     Route: 048
     Dates: start: 20070401
  2. NORVASC [Concomitant]

REACTIONS (2)
  - BLOOD PRESSURE IMMEASURABLE [None]
  - SHOCK [None]
